FAERS Safety Report 5620770-4 (Version None)
Quarter: 2008Q1

REPORT INFORMATION
  Report Type: 
  Country: None (occurrence: None)
  Receive Date: 20080208
  Receipt Date: 20080130
  Transmission Date: 20080703
  Serious: Yes (Death, Life-Threatening, Hospitalization, Other)
  Sender: FDA-Public Use
  Company Number: DE-ABBOTT-07P-062-0425578-00

PATIENT
  Sex: Male

DRUGS (6)
  1. HUMIRA [Suspect]
     Indication: RHEUMATOID ARTHRITIS
     Route: 058
     Dates: start: 20060401, end: 20060601
  2. INFLIXIMAB [Suspect]
     Indication: RHEUMATOID ARTHRITIS
     Route: 065
     Dates: start: 20060601, end: 20061016
  3. INFLIXIMAB [Suspect]
     Dates: start: 20061001
  4. RITUXIMAB [Suspect]
     Indication: RHEUMATOID ARTHRITIS
     Route: 065
     Dates: start: 20061130, end: 20061214
  5. CORTICOSTEROID NOS [Concomitant]
     Indication: DRUG USE FOR UNKNOWN INDICATION
  6. INTERFERON [Concomitant]
     Indication: DRUG USE FOR UNKNOWN INDICATION
     Dates: start: 20060601, end: 20061001

REACTIONS (47)
  - ANAEMIA [None]
  - ATRIAL FIBRILLATION [None]
  - BORDETELLA INFECTION [None]
  - CONDITION AGGRAVATED [None]
  - CRITICAL ILLNESS POLYNEUROPATHY [None]
  - DEPRESSION [None]
  - DYSPHAGIA [None]
  - DYSPHONIA [None]
  - DYSPNOEA [None]
  - ENTEROCOCCAL INFECTION [None]
  - GAMMA-GLUTAMYLTRANSFERASE INCREASED [None]
  - HAEMORRHAGE [None]
  - HORNER'S SYNDROME [None]
  - HYPERTENSION [None]
  - HYPOALBUMINAEMIA [None]
  - HYPOGLYCAEMIA [None]
  - INFLAMMATION [None]
  - KNEE ARTHROPLASTY [None]
  - KNEE DEFORMITY [None]
  - LABORATORY TEST ABNORMAL [None]
  - LOSS OF CONSCIOUSNESS [None]
  - LUNG INFILTRATION [None]
  - LYMPHOPENIA [None]
  - OEDEMA [None]
  - OSTEOARTHRITIS [None]
  - OSTEOPOROSIS [None]
  - PERICARDIAL EFFUSION [None]
  - PERTUSSIS [None]
  - PLEURAL EFFUSION [None]
  - PNEUMONIA [None]
  - PNEUMONIA ASPIRATION [None]
  - PROTEIN-LOSING GASTROENTEROPATHY [None]
  - PSEUDOMONAS INFECTION [None]
  - PULMONARY CONGESTION [None]
  - RECTAL ULCER [None]
  - RENAL FAILURE CHRONIC [None]
  - RESPIRATION ABNORMAL [None]
  - RESPIRATORY FAILURE [None]
  - RESPIRATORY GAS EXCHANGE DISORDER [None]
  - RHEUMATOID ARTHRITIS [None]
  - SEPSIS [None]
  - SOMNOLENCE [None]
  - STENOTROPHOMONAS INFECTION [None]
  - TACHYARRHYTHMIA [None]
  - THORACIC CAVITY DRAINAGE [None]
  - TYPE 1 DIABETES MELLITUS [None]
  - UPPER GASTROINTESTINAL HAEMORRHAGE [None]
